FAERS Safety Report 7610997 (Version 3)
Quarter: 2013Q4

REPORT INFORMATION
  Report Type: Spontaneous
  Country: US (occurrence: US)
  Receive Date: 20100929
  Receipt Date: 20131213
  Transmission Date: 20140711
  Serious: Yes (Other)
  Sender: FDA-Public Use
  Company Number: US-BAYER-201034706NA

PATIENT
  Age: 25 Year
  Sex: Female
  Weight: 75 kg

DRUGS (8)
  1. YASMIN [Suspect]
     Indication: ACNE
     Dosage: UNK
     Dates: start: 2004, end: 2009
  2. YASMIN [Suspect]
     Indication: CONTRACEPTION
  3. OCELLA [Suspect]
     Indication: ACNE
     Dosage: UNK
     Dates: start: 2004, end: 2009
  4. OCELLA [Suspect]
     Indication: CONTRACEPTION
  5. BACTRIM [Concomitant]
     Indication: ACNE
     Route: 048
  6. SPIRONOLACTONE [Concomitant]
     Indication: ACNE
     Route: 048
  7. BENZACLIN [Concomitant]
     Indication: ACNE
     Route: 061
  8. PROTONIX [Concomitant]
     Indication: GASTROOESOPHAGEAL REFLUX DISEASE
     Route: 048

REACTIONS (3)
  - Biliary dyskinesia [None]
  - Cholecystitis chronic [None]
  - Cholecystectomy [None]
